FAERS Safety Report 25774408 (Version 1)
Quarter: 2025Q3

REPORT INFORMATION
  Report Type: Spontaneous
  Country: US (occurrence: None)
  Receive Date: 20250908
  Receipt Date: 20250908
  Transmission Date: 20251020
  Serious: No
  Sender: FDA-CTU
  Company Number: None

PATIENT
  Age: 84 Year
  Sex: Female

DRUGS (9)
  1. TAGRISSO [Suspect]
     Active Substance: OSIMERTINIB
     Indication: Lung neoplasm malignant
     Dosage: FREQUENCY : DAILY;?
     Route: 048
     Dates: start: 20250827
  2. amlodipine 5mg tabs [Concomitant]
  3. eliquis 2.5mg tabs [Concomitant]
  4. gemtesa 75mg tabs [Concomitant]
  5. levothyroxine 0.125mg tabs [Concomitant]
  6. ondansetron 8mg tabs [Concomitant]
  7. rosuvastatin 10mg tabs [Concomitant]
  8. Fish oil 1000mg caps [Concomitant]
  9. vitamin c 1000mg tabs [Concomitant]

REACTIONS (1)
  - Nausea [None]

NARRATIVE: CASE EVENT DATE: 20250827
